FAERS Safety Report 12923175 (Version 1)
Quarter: 2016Q4

REPORT INFORMATION
  Report Type: Spontaneous
  Country: US (occurrence: US)
  Receive Date: 20161109
  Receipt Date: 20161109
  Transmission Date: 20170207
  Serious: Yes (Death)
  Sender: FDA-Public Use
  Company Number: US-CONCORDIA PHARMACEUTICALS INC.-GSH201611-005599

PATIENT
  Age: 39 Year
  Sex: Male

DRUGS (5)
  1. ALCOHOL. [Suspect]
     Active Substance: ALCOHOL
  2. LAMOTRIGINE. [Suspect]
     Active Substance: LAMOTRIGINE
  3. HALOPERIDOL. [Suspect]
     Active Substance: HALOPERIDOL
  4. CLONIDINE. [Suspect]
     Active Substance: CLONIDINE
  5. BUPROPION. [Suspect]
     Active Substance: BUPROPION

REACTIONS (1)
  - Completed suicide [Fatal]
